FAERS Safety Report 10149825 (Version 2)
Quarter: 2014Q3

REPORT INFORMATION
  Report Type: Report from Study
  Country: IT (occurrence: None)
  Receive Date: 20140430
  Receipt Date: 20140725
  Transmission Date: 20150326
  Serious: Yes (Other)
  Sender: FDA-Public Use
  Company Number: AUR-APL-2014-05164

PATIENT
  Age: 81 Year
  Sex: Male

DRUGS (1)
  1. ATENOLOL. [Suspect]
     Active Substance: ATENOLOL
     Indication: MYOCARDIAL ISCHAEMIA
     Dosage: (100 MG, 1 D), ORAL
     Route: 048
     Dates: start: 20140212, end: 20140219

REACTIONS (1)
  - Renal failure chronic [None]

NARRATIVE: CASE EVENT DATE: 20140219
